FAERS Safety Report 4897769-9 (Version None)
Quarter: 2006Q1

REPORT INFORMATION
  Report Type: 
  Country: None (occurrence: None)
  Receive Date: 20060130
  Receipt Date: 20060130
  Transmission Date: 20060701
  Serious: Yes (Disabling)
  Sender: FDA-Public Use
  Company Number: None

PATIENT
  Age: 75 Year
  Sex: Male
  Weight: 77.5651 kg

DRUGS (19)
  1. FOSAMAX [Suspect]
     Indication: OSTEOPOROSIS
     Dosage: 70 MG ONCE WEEKLY PO
     Route: 048
     Dates: start: 20040527, end: 20051018
  2. PREDNISONE [Suspect]
     Indication: CHRONIC OBSTRUCTIVE PULMONARY DISEASE
     Dosage: 5 MG QD PO
     Route: 048
     Dates: start: 19940406, end: 20060131
  3. SERTRALINE HCL [Concomitant]
  4. SALMETEROL [Concomitant]
  5. OMEPRAZOLE [Concomitant]
  6. NITROGLYCERIN [Concomitant]
  7. MONTELUKAST NA [Concomitant]
  8. LISINOPRIL [Concomitant]
  9. IPRATROPIUM BROMIDE [Concomitant]
  10. HYDROXYZINE PAMOATE [Concomitant]
  11. TRIAMTERENE AND HYDROCHLOROTHIAZIDE [Concomitant]
  12. FLUNISOLIDE [Concomitant]
  13. FERROUS SO4 [Concomitant]
  14. DILTIAZEM- INWOOD [Concomitant]
  15. LANOXIN [Concomitant]
  16. CARBAMAZEPINE [Concomitant]
  17. CALCIUM 500 MG/ VITAMIN D [Concomitant]
  18. ALBUTEROL SO4 [Concomitant]
  19. ALBUTEROL SULFATE AND IPRATROPIUM BROMIDE [Concomitant]

REACTIONS (14)
  - ABDOMINAL PAIN UPPER [None]
  - ASTHENIA [None]
  - CHILLS [None]
  - DIARRHOEA [None]
  - DIZZINESS [None]
  - DYSPEPSIA [None]
  - DYSPNOEA [None]
  - EROSIVE OESOPHAGITIS [None]
  - GASTRIC ULCER [None]
  - NAUSEA [None]
  - PRODUCTIVE COUGH [None]
  - PYREXIA [None]
  - UPPER GASTROINTESTINAL HAEMORRHAGE [None]
  - VOMITING [None]
